FAERS Safety Report 11829084 (Version 1)
Quarter: 2015Q4

REPORT INFORMATION
  Report Type: Spontaneous
  Country: US (occurrence: US)
  Receive Date: 20151211
  Receipt Date: 20151211
  Transmission Date: 20160305
  Serious: No
  Sender: FDA-Public Use
  Company Number: US-BAUSCH-BL-2015-010636

PATIENT
  Age: 19 Year
  Sex: Female

DRUGS (4)
  1. XENAZINE [Suspect]
     Active Substance: TETRABENAZINE
     Dosage: 1 TAB IN EVENING
     Route: 048
     Dates: start: 20150305
  2. XENAZINE [Suspect]
     Active Substance: TETRABENAZINE
     Dosage: DIVIDED DOSES, DAILY
  3. XENAZINE [Suspect]
     Active Substance: TETRABENAZINE
     Dosage: 1TAB IN AFTERNOON.
     Route: 048
     Dates: start: 20150305
  4. XENAZINE [Suspect]
     Active Substance: TETRABENAZINE
     Indication: TOURETTE^S DISORDER
     Dosage: 2 TABS IN AM
     Route: 048
     Dates: start: 20150305

REACTIONS (4)
  - Muscle twitching [Not Recovered/Not Resolved]
  - Tic [Unknown]
  - Product use issue [Not Recovered/Not Resolved]
  - Treatment noncompliance [Not Recovered/Not Resolved]

NARRATIVE: CASE EVENT DATE: 20150315
